FAERS Safety Report 11656049 (Version 1)
Quarter: 2015Q4

REPORT INFORMATION
  Report Type: Spontaneous
  Country: PT (occurrence: PT)
  Receive Date: 20151023
  Receipt Date: 20151023
  Transmission Date: 20160304
  Serious: Yes (Other)
  Sender: FDA-Public Use
  Company Number: PT-VIFOR (INTERNATIONAL) INC.-VIT-2015-02321

PATIENT
  Age: 34 Year
  Sex: Male
  Weight: 59 kg

DRUGS (11)
  1. NEORECORMON [Concomitant]
     Active Substance: ERYTHROPOIETIN
     Indication: ANAEMIA
     Route: 058
     Dates: start: 20150615
  2. FOLICIL [Concomitant]
     Active Substance: FOLIC ACID
     Indication: FOLATE DEFICIENCY
     Route: 048
     Dates: start: 20140108
  3. ETALPHA [Concomitant]
     Active Substance: ALFACALCIDOL
     Route: 048
     Dates: start: 20150408, end: 20150705
  4. ETALPHA [Concomitant]
     Active Substance: ALFACALCIDOL
     Route: 048
     Dates: start: 20150706, end: 20150906
  5. VELPHORO [Suspect]
     Active Substance: FERRIC OXYHYDROXIDE
     Indication: HYPERPHOSPHATAEMIA
     Route: 048
     Dates: start: 20150727, end: 20150728
  6. LOSARTAN. [Concomitant]
     Active Substance: LOSARTAN
     Indication: HYPERTENSION
     Route: 048
     Dates: start: 20150311
  7. ETALPHA [Concomitant]
     Active Substance: ALFACALCIDOL
     Route: 048
     Dates: start: 20150706
  8. SACCHARATED IRON OXIDE [Concomitant]
     Active Substance: IRON SUCROSE
     Indication: IRON DEFICIENCY
     Route: 042
     Dates: start: 20150114
  9. DAGRAVIT B COMPLEX FORTE [Concomitant]
     Route: 048
     Dates: start: 20150906
  10. HEPARINA LEO [Concomitant]
     Indication: HAEMODIALYSIS
     Route: 042
     Dates: start: 20120130
  11. RENVELA [Concomitant]
     Active Substance: SEVELAMER CARBONATE
     Indication: HYPERPHOSPHATAEMIA
     Route: 048
     Dates: start: 20150613, end: 20150726

REACTIONS (3)
  - Dyspnoea [Recovered/Resolved]
  - Fatigue [Recovered/Resolved]
  - Muscle spasms [Recovered/Resolved]

NARRATIVE: CASE EVENT DATE: 20150727
